FAERS Safety Report 5749760-8 (Version None)
Quarter: 2008Q2

REPORT INFORMATION
  Report Type: 
  Country: None (occurrence: None)
  Receive Date: 20080527
  Receipt Date: 20080514
  Transmission Date: 20081010
  Serious: Yes (Death, Hospitalization, Other)
  Sender: FDA-Public Use
  Company Number: SK-ELI_LILLY_AND_COMPANY-SK200805002028

PATIENT
  Sex: Male

DRUGS (10)
  1. ALIMTA [Suspect]
     Indication: NON-SMALL CELL LUNG CANCER
     Dosage: 500 MG/M2, UNKNOWN
     Route: 042
     Dates: start: 20071201
  2. ALIMTA [Suspect]
     Dosage: UNK, UNKNOWN
     Route: 042
     Dates: start: 20080128
  3. FOLIC ACID [Concomitant]
     Indication: SUPPLEMENTATION THERAPY
     Dosage: UNK, UNKNOWN
     Route: 065
  4. VITAMIN B-12 [Concomitant]
     Indication: SUPPLEMENTATION THERAPY
     Dosage: UNK, UNKNOWN
     Route: 065
  5. CORTICOSTEROIDS [Concomitant]
     Indication: PREMEDICATION
     Dosage: UNK, UNKNOWN
     Route: 065
  6. TRAMADOLE [Concomitant]
     Indication: PAIN
     Dosage: UNK, UNKNOWN
     Route: 065
  7. TRANSTEC [Concomitant]
     Indication: PAIN
     Dosage: UNK, UNKNOWN
     Route: 065
  8. SYMBICORT [Concomitant]
     Indication: CHRONIC OBSTRUCTIVE PULMONARY DISEASE
     Dosage: UNK, UNKNOWN
     Route: 065
  9. ATROVENT [Concomitant]
     Indication: CHRONIC OBSTRUCTIVE PULMONARY DISEASE
     Dosage: UNK, UNKNOWN
     Route: 065
  10. ARANESP [Concomitant]
     Indication: ANAEMIA
     Dosage: 500 UG, OTHER
     Route: 065

REACTIONS (5)
  - HEPATORENAL FAILURE [None]
  - INFECTION [None]
  - MALIGNANT NEOPLASM PROGRESSION [None]
  - PANCYTOPENIA [None]
  - SUBILEUS [None]
